FAERS Safety Report 17073735 (Version 4)
Quarter: 2025Q2

REPORT INFORMATION
  Report Type: Spontaneous
  Country: US (occurrence: US)
  Receive Date: 20191126
  Receipt Date: 20250606
  Transmission Date: 20250716
  Serious: Yes (Other)
  Sender: BIOGEN
  Company Number: US-BIOGEN-2019BI00809328

PATIENT
  Age: 71 Year
  Sex: Female

DRUGS (2)
  1. TECFIDERA [Suspect]
     Active Substance: DIMETHYL FUMARATE
     Indication: Multiple sclerosis
     Dosage: MAINTENANCE DOSE
     Route: 050
     Dates: start: 20171206
  2. TECFIDERA [Suspect]
     Active Substance: DIMETHYL FUMARATE
     Dosage: STARTING DOSE
     Route: 050

REACTIONS (3)
  - Diabetes mellitus [Unknown]
  - Hypertension [Not Recovered/Not Resolved]
  - Cardiac murmur [Unknown]

NARRATIVE: CASE EVENT DATE: 20191201
